FAERS Safety Report 8960114 (Version 1)
Quarter: 2012Q4

REPORT INFORMATION
  Report Type: 
  Country: HR (occurrence: HR)
  Receive Date: 20121211
  Receipt Date: 20121211
  Transmission Date: 20130627
  Serious: Yes (Other)
  Sender: FDA-Public Use
  Company Number: HR-GLAXOSMITHKLINE-B0850182A

PATIENT
  Age: 45 Year
  Sex: Female

DRUGS (1)
  1. AVAMYS [Suspect]
     Indication: RHINITIS
     Dosage: 110MCG per day
     Route: 065

REACTIONS (2)
  - Rosacea [Not Recovered/Not Resolved]
  - Erythema [Not Recovered/Not Resolved]
